FAERS Safety Report 10788331 (Version 1)
Quarter: 2015Q1

REPORT INFORMATION
  Report Type: Spontaneous
  Country: IL (occurrence: None)
  Receive Date: 20150210
  Receipt Date: 20150210
  Transmission Date: 20150721
  Serious: Yes (Other)
  Sender: FDA-Public Use
  Company Number: FK201500531

PATIENT
  Age: 11 Week
  Sex: Female

DRUGS (4)
  1. LOSARTAN [Concomitant]
     Active Substance: LOSARTAN
  2. PROPRANOLOL HYDROCHLORIDE. [Suspect]
     Active Substance: PROPRANOLOL HYDROCHLORIDE
     Indication: PRODUCT USED FOR UNKNOWN INDICATION
     Dosage: 1.5MG/KG/DAILY IN 3 DIVIDED DOSES, UNKNOWN
  3. SPIRONOLACTONE (SPIRONOLACTONE) [Concomitant]
     Active Substance: SPIRONOLACTONE
  4. FUROSEMIDE. [Concomitant]
     Active Substance: FUROSEMIDE

REACTIONS (1)
  - Seizure [None]
